FAERS Safety Report 7607500 (Version 3)
Quarter: 2012Q4

REPORT INFORMATION
  Report Type: 
  Country: US (occurrence: US)
  Receive Date: 20100927
  Receipt Date: 20121210
  Transmission Date: 20130627
  Serious: No
  Sender: FDA-Public Use
  Company Number: US-ASTRAZENECA-2010SE07589

PATIENT
  Age: 69 Year
  Sex: Female
  Weight: 65.3 kg

DRUGS (8)
  1. ARIMIDEX [Suspect]
     Indication: BREAST CANCER
     Route: 048
     Dates: start: 200704
  2. ARIMIDEX [Suspect]
     Indication: BREAST CANCER
     Dosage: generic anastrazole, daily
     Route: 048
     Dates: start: 2010
  3. ARIMIDEX [Suspect]
     Indication: BREAST CANCER
     Dosage: unknown dose daily
     Route: 048
  4. CALCIUM PLUS D [Concomitant]
     Indication: OSTEOPENIA
  5. VITAMINS [Concomitant]
  6. CITRACIL [Concomitant]
     Indication: MINERAL SUPPLEMENTATION
     Dosage: BID
  7. LORAZEPAM [Concomitant]
     Indication: ANXIETY
     Route: 048
  8. FIORINAL [Concomitant]
     Indication: MIGRAINE
     Dosage: unknown dose, as required
     Route: 048

REACTIONS (11)
  - Paraesthesia [Unknown]
  - Crying [Unknown]
  - Tinnitus [Unknown]
  - Pain in extremity [Unknown]
  - Blood oestrogen increased [Unknown]
  - Anxiety [Not Recovered/Not Resolved]
  - Insomnia [Not Recovered/Not Resolved]
  - Amnesia [Unknown]
  - Nausea [Not Recovered/Not Resolved]
  - Rash [Not Recovered/Not Resolved]
  - Hot flush [Not Recovered/Not Resolved]
